FAERS Safety Report 5271759-9 (Version None)
Quarter: 2007Q1

REPORT INFORMATION
  Report Type: 
  Country: None (occurrence: None)
  Receive Date: 20070321
  Receipt Date: 20070309
  Transmission Date: 20070707
  Serious: Yes (Other)
  Sender: FDA-Public Use
  Company Number: ES-PFIZER INC-2007018006

PATIENT
  Age: 83 Year
  Sex: Male

DRUGS (4)
  1. VORICONAZOLE [Suspect]
     Indication: BRONCHOPULMONARY ASPERGILLOSIS
     Dosage: DAILY DOSE:800MG
     Route: 042
     Dates: start: 20070221, end: 20070222
  2. INSULIN [Concomitant]
     Route: 058
  3. COZAAR [Concomitant]
     Route: 048
  4. URBASON [Concomitant]
     Route: 042

REACTIONS (1)
  - PALATAL OEDEMA [None]
